FAERS Safety Report 19166254 (Version 4)
Quarter: 2023Q4

REPORT INFORMATION
  Report Type: Report from Study
  Country: US (occurrence: US)
  Receive Date: 20210422
  Receipt Date: 20231009
  Transmission Date: 20240110
  Serious: No
  Sender: FDA-Public Use
  Company Number: US-TEVA-2021-US-1903242

PATIENT
  Age: 35 Year
  Sex: Female

DRUGS (2)
  1. CLARAVIS [Suspect]
     Active Substance: ISOTRETINOIN
     Indication: Product used for unknown indication
     Dosage: 80 MILLIGRAM DAILY;
     Route: 065
     Dates: start: 20210310, end: 20210412
  2. CLARAVIS [Suspect]
     Active Substance: ISOTRETINOIN
     Dates: start: 20201001, end: 20201201

REACTIONS (4)
  - Maternal exposure before pregnancy [Unknown]
  - Pregnancy test false positive [Unknown]
  - Treatment noncompliance [Unknown]
  - Normal newborn [Unknown]

NARRATIVE: CASE EVENT DATE: 20210101
